FAERS Safety Report 4807565-6 (Version None)
Quarter: 2005Q4

REPORT INFORMATION
  Report Type: 
  Country: None (occurrence: None)
  Receive Date: 20051024
  Receipt Date: 20051012
  Transmission Date: 20060501
  Serious: Yes (Death, Hospitalization)
  Sender: FDA-Public Use
  Company Number: US-ROCHE-420800

PATIENT
  Age: 52 Year
  Sex: Female

DRUGS (3)
  1. MYCOPHENOLATE MOFETIL [Suspect]
     Route: 065
     Dates: start: 20020507, end: 20041212
  2. NEORAL [Suspect]
     Route: 048
     Dates: start: 20020507, end: 20041212
  3. PREDNISONE TAB [Suspect]
     Route: 048
     Dates: start: 20020507, end: 20041212

REACTIONS (14)
  - ACUTE RESPIRATORY FAILURE [None]
  - ANAEMIA [None]
  - ATRIAL FIBRILLATION [None]
  - CORONARY ARTERY DISEASE [None]
  - DISSEMINATED INTRAVASCULAR COAGULATION [None]
  - ISCHAEMIC HEPATITIS [None]
  - KIDNEY TRANSPLANT REJECTION [None]
  - KLEBSIELLA SEPSIS [None]
  - MITRAL VALVE INCOMPETENCE [None]
  - RENAL FAILURE [None]
  - RENAL FAILURE CHRONIC [None]
  - RHEUMATIC HEART DISEASE [None]
  - SEPTIC SHOCK [None]
  - TRICUSPID VALVE INCOMPETENCE [None]
